FAERS Safety Report 8697333 (Version 5)
Quarter: 2014Q3

REPORT INFORMATION
  Report Type: Report from Study
  Country: US (occurrence: US)
  Receive Date: 20120801
  Receipt Date: 20140702
  Transmission Date: 20150326
  Serious: Yes (Hospitalization, Other)
  Sender: FDA-Public Use
  Company Number: US-US-EMD SERONO, INC.-7150296

PATIENT
  Age: 70 Year
  Sex: Male
  Weight: 60 kg

DRUGS (2)
  1. REBIF [Suspect]
     Active Substance: INTERFERON BETA-1A
     Indication: MULTIPLE SCLEROSIS
     Route: 058
     Dates: start: 20040722, end: 2011
  2. REBIF [Suspect]
     Active Substance: INTERFERON BETA-1A
     Route: 058
     Dates: start: 2011

REACTIONS (15)
  - Gastrointestinal stromal tumour [Recovered/Resolved]
  - Injection site swelling [Not Recovered/Not Resolved]
  - Feeling abnormal [Unknown]
  - Hepatic enzyme increased [Recovered/Resolved]
  - Blood cholesterol increased [Not Recovered/Not Resolved]
  - Pain [Recovered/Resolved]
  - Ejection fraction decreased [Unknown]
  - Injection site infection [Unknown]
  - Pulmonary oedema [Unknown]
  - Injection site rash [Not Recovered/Not Resolved]
  - Cardiac failure [Unknown]
  - Injection site erythema [Not Recovered/Not Resolved]
  - Pleural effusion [Unknown]
  - Injection site scab [Unknown]
  - Hypersensitivity [Unknown]

NARRATIVE: CASE EVENT DATE: 2012
